FAERS Safety Report 18527470 (Version 1)
Quarter: 2020Q4

REPORT INFORMATION
  Report Type: Spontaneous
  Country: US (occurrence: US)
  Receive Date: 20201120
  Receipt Date: 20201120
  Transmission Date: 20210114
  Serious: Yes (Death)
  Sender: FDA-Public Use
  Company Number: None

PATIENT
  Age: 84 Year
  Sex: Male
  Weight: 45 kg

DRUGS (4)
  1. LOPRESSOR HCT 50-25MG ORAL [Concomitant]
  2. PROCHLORPERAZONE 5MG ORAL [Concomitant]
  3. HYDROCHLORTHIAZIDE 12.5MG ORAL [Concomitant]
  4. IMATINIB. [Suspect]
     Active Substance: IMATINIB MESYLATE
     Indication: ANAEMIA
     Route: 048
     Dates: start: 20170630, end: 20201119

REACTIONS (1)
  - Death [None]

NARRATIVE: CASE EVENT DATE: 20201119
